FAERS Safety Report 19703936 (Version 3)
Quarter: 2021Q3

REPORT INFORMATION
  Report Type: Report from Study
  Country: FR (occurrence: FR)
  Receive Date: 20210816
  Receipt Date: 20210916
  Transmission Date: 20211014
  Serious: Yes (Other)
  Sender: FDA-Public Use
  Company Number: FR-JNJFOC-20210811902

PATIENT
  Age: 63 Year
  Sex: Male

DRUGS (22)
  1. DARATUMUMAB [Suspect]
     Active Substance: DARATUMUMAB
     Dosage: 1408 MILLIGRAM / INDUCTION C2 DAYS 8,15, 22
     Route: 042
     Dates: start: 20200227, end: 20200317
  2. MELPHALAN. [Concomitant]
     Active Substance: MELPHALAN
     Route: 065
     Dates: start: 20210201
  3. DARATUMUMAB [Suspect]
     Active Substance: DARATUMUMAB
     Dosage: 1408 MILLIGRAM / INDUCTION C3 TO C6 DAYS 1 AND 15
     Route: 042
     Dates: start: 20200324, end: 20200630
  4. DARATUMUMAB [Suspect]
     Active Substance: DARATUMUMAB
     Dosage: 1408 MILLIGRAM / CONSOLIDATION (4 CYCLES) C7 TO C10 DAY 1?15
     Route: 042
     Dates: start: 20201008, end: 20210114
  5. DARATUMUMAB [Suspect]
     Active Substance: DARATUMUMAB
     Dosage: MAINTENANCE, LAST DOSE WAS ON 20?MAY?2021.
     Route: 042
     Dates: start: 20210325
  6. CARFILZOMIB [Suspect]
     Active Substance: CARFILZOMIB
     Dosage: C2 TO C6 DAYS 1?2, 8?9, 15?16, (70MG/DAY DURING C2 AND C6)
     Route: 042
     Dates: start: 20200225, end: 20200701
  7. LENALIDOMIDE [Suspect]
     Active Substance: LENALIDOMIDE
     Route: 048
     Dates: start: 20210325, end: 20210617
  8. LENALIDOMIDE [Suspect]
     Active Substance: LENALIDOMIDE
     Indication: PLASMA CELL MYELOMA
     Dosage: 25 MILLIGRAM / INDUCTION C1 TO C6 : 25 MG/DAY FROM DAY 1 TO DAY 21
     Route: 048
     Dates: start: 20200127, end: 20200706
  9. LENALIDOMIDE [Suspect]
     Active Substance: LENALIDOMIDE
     Dosage: 25 MILLIGRAM / CONSOLIDATION C8 TO C10 25 MG/DAY FROM D 1 TO D 21
     Route: 048
     Dates: start: 20201105, end: 20210120
  10. PROPRANOLOL [Concomitant]
     Active Substance: PROPRANOLOL HYDROCHLORIDE
     Route: 065
  11. CARFILZOMIB [Suspect]
     Active Substance: CARFILZOMIB
     Dosage: 39 MILLIGRAM / CONSOLIDATION (4 CYCLES) DAY 1 (C7)
     Route: 042
     Dates: start: 20201008, end: 20201008
  12. DEXAMETHASONE NON?COMPANY [Suspect]
     Active Substance: DEXAMETHASONE
     Dosage: 40 MILLIGRAM / CONSOLIDATION C7 TO C10 : 40 MG/DAY ON DAYS 1?8?15?22
     Route: 048
     Dates: start: 20201008, end: 20210121
  13. LEVODOPA [Concomitant]
     Active Substance: LEVODOPA
     Route: 065
  14. DARATUMUMAB [Suspect]
     Active Substance: DARATUMUMAB
     Dosage: 1408 MILLIGRAM / INDUCTION C1 DAYS 8,15, 22
     Route: 042
     Dates: start: 20200227, end: 20200630
  15. CARFILZOMIB [Suspect]
     Active Substance: CARFILZOMIB
     Dosage: 108 MILLIGRAM / CONSOLIDATION (4 CYCLES) C8 TO C10
     Route: 042
     Dates: start: 20201105, end: 20210114
  16. CYCLOPHOSPHAMIDE. [Concomitant]
     Active Substance: CYCLOPHOSPHAMIDE
     Route: 065
     Dates: start: 20200727
  17. DARATUMUMAB [Suspect]
     Active Substance: DARATUMUMAB
     Indication: PLASMA CELL MYELOMA
     Dosage: 704 MILLIGRAM / INDUCTION C1 DAY 1?2
     Route: 042
     Dates: start: 20200227, end: 20200228
  18. CARFILZOMIB [Suspect]
     Active Substance: CARFILZOMIB
     Dosage: 69.8 MILLIGRAM / INDUCTION C1 DAYS 8?9 AND 15?16
     Route: 042
     Dates: start: 20200204, end: 20200212
  19. CARFILZOMIB [Suspect]
     Active Substance: CARFILZOMIB
     Dosage: 109 MILLIGRAM / CONSOLIDATION (4 CYCLES) DAY 8 AND 15 (C7)
     Route: 042
     Dates: start: 20201015, end: 20201022
  20. LENALIDOMIDE [Suspect]
     Active Substance: LENALIDOMIDE
     Dosage: 15 MILLIGRAM / CONSOLIDATION C7 15 MG/DAY FROM DAY 1 TO DAY 21
     Route: 048
     Dates: start: 20201008, end: 20201028
  21. CARFILZOMIB [Suspect]
     Active Substance: CARFILZOMIB
     Indication: PLASMA CELL MYELOMA
     Dosage: 38.8 MILLIGRAM / INDUCTION C1 DAY 1?2
     Route: 042
     Dates: start: 20200127, end: 20200128
  22. DEXAMETHASONE NON?COMPANY [Suspect]
     Active Substance: DEXAMETHASONE
     Indication: PLASMA CELL MYELOMA
     Dosage: 20 MILLIGRAM / C1 TO C6 : 20 MG/DAY ON DAYS 1?2?8?9?15?16?22?23
     Route: 048
     Dates: start: 20200127, end: 20200708

REACTIONS (1)
  - Progressive multifocal leukoencephalopathy [Not Recovered/Not Resolved]

NARRATIVE: CASE EVENT DATE: 20210408
